FAERS Safety Report 4684227-X (Version None)
Quarter: 2005Q2

REPORT INFORMATION
  Report Type: 
  Country: None (occurrence: None)
  Receive Date: 20050531
  Receipt Date: 20050323
  Transmission Date: 20051028
  Serious: Yes (Hospitalization)
  Sender: FDA-Public Use
  Company Number: US_0411108127

PATIENT
  Age: 46 Year
  Sex: Female
  Weight: 47.6277 kg

DRUGS (6)
  1. ZYPREXA [Suspect]
     Indication: SLEEP DISORDER
     Dosage: 15 MG DAY
  2. CYMBALTA [Suspect]
     Indication: DEPRESSION
     Dosage: 60 MG/1 DAY
     Dates: start: 20041001
  3. TRAZODONE HCL [Concomitant]
  4. LUVOX [Concomitant]
  5. LORAZEPAM [Concomitant]
  6. BENADRYL [Concomitant]

REACTIONS (11)
  - ANXIETY [None]
  - APATHY [None]
  - DEPRESSION [None]
  - DEPRESSION SUICIDAL [None]
  - DRUG WITHDRAWAL SYNDROME [None]
  - FATIGUE [None]
  - HYPERHIDROSIS [None]
  - INSOMNIA [None]
  - MOOD ALTERED [None]
  - NERVOUSNESS [None]
  - WEIGHT INCREASED [None]
